FAERS Safety Report 25583546 (Version 1)
Quarter: 2025Q3

REPORT INFORMATION
  Report Type: Spontaneous
  Country: CO (occurrence: CO)
  Receive Date: 20250721
  Receipt Date: 20250721
  Transmission Date: 20251021
  Serious: Yes (Hospitalization, Other)
  Sender: NOVO NORDISK
  Company Number: CO-NOVOPROD-1476456

PATIENT
  Age: 44 Year
  Sex: Female

DRUGS (2)
  1. SAXENDA [Suspect]
     Active Substance: LIRAGLUTIDE
     Indication: Multimorbidity
  2. SAXENDA [Suspect]
     Active Substance: LIRAGLUTIDE
     Indication: Overweight
     Dosage: 3 MG, QD
     Route: 058
     Dates: start: 201906, end: 201908

REACTIONS (4)
  - Heavy menstrual bleeding [Recovered/Resolved]
  - Anaemia postoperative [Recovered/Resolved]
  - Procedural pain [Recovered/Resolved]
  - Skin laxity [Recovered/Resolved]

NARRATIVE: CASE EVENT DATE: 20190601
